FAERS Safety Report 7108382-7 (Version None)
Quarter: 2010Q4

REPORT INFORMATION
  Report Type: 
  Country: None (occurrence: None)
  Receive Date: 20101117
  Receipt Date: 20101108
  Transmission Date: 20110411
  Serious: Yes (Hospitalization)
  Sender: FDA-Public Use
  Company Number: A0843552A

PATIENT
  Age: 52 Year
  Sex: Female
  Weight: 82.3 kg

DRUGS (1)
  1. AVANDIA [Suspect]
     Dosage: 4MG TWICE PER DAY
     Route: 048
     Dates: start: 20051212, end: 20081001

REACTIONS (2)
  - CARDIAC FAILURE CONGESTIVE [None]
  - PALPITATIONS [None]
